FAERS Safety Report 12203335 (Version 1)
Quarter: 2016Q1

REPORT INFORMATION
  Report Type: Spontaneous
  Country: US (occurrence: None)
  Receive Date: 20160321
  Receipt Date: 20160321
  Transmission Date: 20160526
  Serious: Yes (Other)
  Sender: FDA-Public Use
  Company Number: None

PATIENT
  Age: 68 Year
  Sex: Female

DRUGS (2)
  1. HYDROMORPHONE 0.50-2MG [Suspect]
     Active Substance: HYDROMORPHONE
     Indication: PAIN
     Dosage: 0.5-2 MG?
  2. FENTANYL 100 MCG/HR [Suspect]
     Active Substance: FENTANYL
     Indication: PAIN

REACTIONS (1)
  - Cholelithiasis [None]

NARRATIVE: CASE EVENT DATE: 20150807
